FAERS Safety Report 10439046 (Version 2)
Quarter: 2014Q3

REPORT INFORMATION
  Report Type: Report from Study
  Country: US (occurrence: US)
  Receive Date: 20140908
  Receipt Date: 20140908
  Transmission Date: 20150326
  Serious: Yes (Life-Threatening, Other)
  Sender: FDA-Public Use
  Company Number: US-ASTRAZENECA-2012SE92919

PATIENT
  Age: 50 Year
  Sex: Male
  Weight: 83.9 kg

DRUGS (10)
  1. CLONAZAPAM [Concomitant]
     Indication: ANTIDEPRESSANT THERAPY
     Dosage: 2-4 MG
     Route: 048
  2. SEROQUEL [Suspect]
     Active Substance: QUETIAPINE FUMARATE
     Route: 048
  3. OMEPRAZOLE. [Suspect]
     Active Substance: OMEPRAZOLE
     Indication: DYSPEPSIA
     Route: 048
  4. OMEPRAZOLE. [Suspect]
     Active Substance: OMEPRAZOLE
     Indication: DYSPEPSIA
     Dosage: PRILOSEC OTC
     Route: 048
  5. ACCOLATE [Suspect]
     Active Substance: ZAFIRLUKAST
     Route: 048
  6. VICTOZA [Concomitant]
     Active Substance: LIRAGLUTIDE
     Indication: DIABETES MELLITUS
     Route: 058
  7. NEXIUM [Suspect]
     Active Substance: ESOMEPRAZOLE MAGNESIUM
     Indication: DYSPEPSIA
     Route: 048
     Dates: end: 2013
  8. METFORMIN [Concomitant]
     Active Substance: METFORMIN HYDROCHLORIDE
     Indication: DIABETES MELLITUS
     Route: 048
  9. TRAZODONE [Concomitant]
     Active Substance: TRAZODONE HYDROCHLORIDE
     Indication: ANTIDEPRESSANT THERAPY
     Route: 048
  10. NIACINE [Concomitant]
     Indication: DIABETES MELLITUS

REACTIONS (12)
  - Suicide attempt [Unknown]
  - Dyspepsia [Unknown]
  - Malaise [Unknown]
  - Dysphagia [Unknown]
  - Intentional product misuse [Unknown]
  - Feelings of worthlessness [Unknown]
  - Gastric disorder [Unknown]
  - Weight decreased [Unknown]
  - Aphagia [Unknown]
  - Gastrooesophageal reflux disease [Unknown]
  - Diabetes mellitus [Unknown]
  - Drug ineffective [Unknown]

NARRATIVE: CASE EVENT DATE: 201408
